FAERS Safety Report 16143970 (Version 2)
Quarter: 2019Q3

REPORT INFORMATION
  Report Type: Spontaneous
  Country: KR (occurrence: KR)
  Receive Date: 20190401
  Receipt Date: 20190805
  Transmission Date: 20191004
  Serious: Yes (Hospitalization, Other)
  Sender: FDA-Public Use
  Company Number: KR-009507513-1903KOR008652

PATIENT
  Age: 25 Year
  Sex: Male
  Weight: 81 kg

DRUGS (8)
  1. DESFLURANE. [Concomitant]
     Active Substance: DESFLURANE
     Indication: ANAESTHESIA
  2. REMIFENTANIL HYDROCHLORIDE. [Suspect]
     Active Substance: REMIFENTANIL HYDROCHLORIDE
     Dosage: 0.06 MCG/KG/MIN
  3. PROPOFOL. [Concomitant]
     Active Substance: PROPOFOL
     Indication: ANAESTHESIA
     Dosage: 2 MILLIGRAM/KILOGRAM, TOTAL 160MG
  4. REMIFENTANIL HYDROCHLORIDE. [Suspect]
     Active Substance: REMIFENTANIL HYDROCHLORIDE
     Dosage: 30 MICROGRAM (0.37 MCG/KG)
  5. ROCURONIUM BROMIDE. [Concomitant]
     Active Substance: ROCURONIUM BROMIDE
     Dosage: 50 MILLIGRAM, 0.625 MG/KG
  6. REMIFENTANIL HYDROCHLORIDE. [Suspect]
     Active Substance: REMIFENTANIL HYDROCHLORIDE
     Indication: PROPHYLAXIS AGAINST PSYCHOMOTOR AGITATION
     Dosage: 0.2 MCG/KG/MIN
  7. LIDOCAINE. [Concomitant]
     Active Substance: LIDOCAINE
     Indication: ANAESTHESIA
     Dosage: 40 MILLIGRAM
  8. SUGAMMADEX SODIUM [Suspect]
     Active Substance: SUGAMMADEX SODIUM
     Dosage: 200 MG (2.5 MILLIGRAM/KILOGRAM)

REACTIONS (2)
  - Negative pressure pulmonary oedema [Recovered/Resolved]
  - Pulmonary alveolar haemorrhage [Recovered/Resolved]
